FAERS Safety Report 10481755 (Version 1)
Quarter: 2014Q3

REPORT INFORMATION
  Report Type: Spontaneous
  Country: US (occurrence: None)
  Receive Date: 20140908
  Receipt Date: 20140908
  Transmission Date: 20150326
  Serious: Yes (Hospitalization)
  Sender: FDA-Public Use
  Company Number: 384164

PATIENT
  Age: 60 Year
  Sex: Female
  Weight: 68.9 kg

DRUGS (5)
  1. PRANDIN (REPAGLINIDE) [Concomitant]
  2. LEVEMIR [Concomitant]
     Active Substance: INSULIN DETEMIR
  3. ANTIHYPERTENSIVES [Concomitant]
     Active Substance: UNSPECIFIED INGREDIENT
  4. TRICOR [Concomitant]
     Active Substance: FENOFIBRATE
  5. VICTOZA [Suspect]
     Active Substance: LIRAGLUTIDE
     Indication: TYPE 2 DIABETES MELLITUS
     Route: 058
     Dates: start: 201103, end: 201106

REACTIONS (1)
  - Pancreatitis [None]

NARRATIVE: CASE EVENT DATE: 201306
